FAERS Safety Report 5598564-8 (Version None)
Quarter: 2008Q1

REPORT INFORMATION
  Report Type: 
  Country: None (occurrence: None)
  Receive Date: 20080122
  Receipt Date: 20080115
  Transmission Date: 20080703
  Serious: Yes (Hospitalization)
  Sender: FDA-Public Use
  Company Number: FR-ELI_LILLY_AND_COMPANY-FR200712002016

PATIENT
  Age: 86 Year
  Sex: Female
  Weight: 45 kg

DRUGS (9)
  1. FORTEO [Suspect]
     Indication: OSTEOPOROSIS
     Dosage: 20 UG, DAILY (1/D)
     Route: 058
     Dates: start: 20070504
  2. POTASSIUM CHLORIDE [Concomitant]
  3. SINTROM [Concomitant]
  4. RABEPRAZOLE SODIUM [Concomitant]
  5. ALEPSAL [Concomitant]
  6. LAMICTAL [Concomitant]
  7. CALTRATE + D [Concomitant]
  8. SPECIAFOLDINE [Concomitant]
  9. SOLUPRED [Concomitant]

REACTIONS (2)
  - FALL [None]
  - FEMORAL NECK FRACTURE [None]
